FAERS Safety Report 22982628 (Version 7)
Quarter: 2024Q2

REPORT INFORMATION
  Report Type: Report from Study
  Country: BR (occurrence: BR)
  Receive Date: 20230926
  Receipt Date: 20240514
  Transmission Date: 20240715
  Serious: Yes (Other)
  Sender: FDA-Public Use
  Company Number: BR-TAKEDA-2023TUS092694

PATIENT
  Sex: Female
  Weight: 59 kg

DRUGS (4)
  1. VELAGLUCERASE ALFA [Suspect]
     Active Substance: VELAGLUCERASE ALFA
     Indication: Gaucher^s disease
     Dosage: 9 DOSAGE FORM, Q2WEEKS
     Route: 042
     Dates: start: 20230728
  2. VELAGLUCERASE ALFA [Suspect]
     Active Substance: VELAGLUCERASE ALFA
     Dosage: 9 DOSAGE FORM, 2/MONTH
     Route: 042
  3. VELAGLUCERASE ALFA [Suspect]
     Active Substance: VELAGLUCERASE ALFA
     Dosage: 9 DOSAGE FORM, 2/MONTH
     Route: 042
     Dates: start: 2023
  4. VELAGLUCERASE ALFA [Suspect]
     Active Substance: VELAGLUCERASE ALFA
     Dosage: 9 DOSAGE FORM, Q2WEEKS
     Route: 042

REACTIONS (9)
  - Osteonecrosis [Unknown]
  - Pain [Unknown]
  - Limb discomfort [Unknown]
  - Lymphoedema [Unknown]
  - Bone pain [Unknown]
  - Gait disturbance [Unknown]
  - Mobility decreased [Unknown]
  - Product availability issue [Unknown]
  - Inappropriate schedule of product administration [Unknown]
